FAERS Safety Report 9577256 (Version 1)
Quarter: 2013Q4

REPORT INFORMATION
  Report Type: Spontaneous
  Country: US (occurrence: US)
  Receive Date: 20131001
  Receipt Date: 20131001
  Transmission Date: 20140711
  Serious: No
  Sender: FDA-Public Use
  Company Number: US-AMGEN-USASP2013007176

PATIENT
  Sex: Male
  Weight: 78.91 kg

DRUGS (7)
  1. ENBREL [Suspect]
     Indication: PSORIATIC ARTHROPATHY
     Dosage: 50 MG, QWK
     Route: 058
  2. SUDAFED NASAL DECONGESTANT [Concomitant]
     Dosage: UNK
  3. VALIUM                             /00017001/ [Concomitant]
     Dosage: 5 MG, UNK
  4. ASPIRIN [Concomitant]
     Dosage: 325 MG, UNK
  5. METOPROLOL TARTRATE [Concomitant]
     Dosage: 25 MG, UNK
  6. MYCOPHENOLATE [Concomitant]
     Dosage: 250 MG, UNK
  7. MULTI-TABS                         /00261701/ [Concomitant]
     Dosage: UNK

REACTIONS (1)
  - Therapeutic response decreased [Unknown]
